FAERS Safety Report 8406581-5 (Version None)
Quarter: 2012Q2

REPORT INFORMATION
  Report Type: 
  Country: None (occurrence: None)
  Receive Date: 20120604
  Receipt Date: 20120523
  Transmission Date: 20120825
  Serious: Yes (Hospitalization)
  Sender: FDA-Public Use
  Company Number: US-JNJFOC-20120519141

PATIENT
  Sex: Female
  Weight: 79.38 kg

DRUGS (13)
  1. SYNVISC [Suspect]
     Indication: JOINT SWELLING
     Route: 065
     Dates: start: 20120101, end: 20120101
  2. SULFASALAZINE [Suspect]
     Indication: RHEUMATOID ARTHRITIS
     Route: 065
     Dates: start: 20060101
  3. PREDNISONE [Suspect]
     Indication: RHEUMATOID ARTHRITIS
     Route: 048
     Dates: start: 20060101
  4. FOLIC ACID [Suspect]
     Indication: RHEUMATOID ARTHRITIS
     Route: 048
     Dates: start: 20060101
  5. LETROZOLE [Suspect]
     Indication: BREAST CANCER
     Route: 065
  6. CALCIUM AND VITAMIN D [Suspect]
     Indication: OSTEOPOROSIS
     Route: 048
  7. GABAPENTIN [Suspect]
     Indication: NEUROPATHY PERIPHERAL
     Route: 048
     Dates: start: 20060101
  8. VITAMIN D [Suspect]
     Indication: OSTEOPOROSIS
     Route: 065
  9. ALENDRONATE SODIUM [Suspect]
     Indication: OSTEOPOROSIS
     Route: 048
     Dates: start: 19980101
  10. REMICADE [Suspect]
     Indication: RHEUMATOID ARTHRITIS
     Route: 042
     Dates: start: 20111201
  11. METHOTREXATE [Suspect]
     Indication: RHEUMATOID ARTHRITIS
     Route: 048
     Dates: start: 20060101
  12. HYDROXYCHLOROQUINE SULFATE [Suspect]
     Indication: RHEUMATOID ARTHRITIS
     Route: 048
     Dates: start: 20060101
  13. VITAMIN B-12 [Suspect]
     Indication: PRODUCT USED FOR UNKNOWN INDICATION
     Route: 048

REACTIONS (8)
  - FEELING ABNORMAL [None]
  - PNEUMONIA [None]
  - RHEUMATOID ARTHRITIS [None]
  - VIRAL INFECTION [None]
  - NERVE COMPRESSION [None]
  - JOINT EFFUSION [None]
  - CARPAL TUNNEL SYNDROME [None]
  - DYSPEPSIA [None]
